FAERS Safety Report 25411418 (Version 1)
Quarter: 2025Q2

REPORT INFORMATION
  Report Type: Spontaneous
  Country: GB (occurrence: GB)
  Receive Date: 20250609
  Receipt Date: 20250609
  Transmission Date: 20250716
  Serious: Yes (Other)
  Sender: TEVA
  Company Number: GB-MHRA-EMIS-1382-7bdd2639-059a-4a1f-9efa-ea1dbb4b7293

PATIENT
  Age: 83 Year
  Sex: Male
  Weight: 67 kg

DRUGS (1)
  1. RAMIPRIL [Suspect]
     Active Substance: RAMIPRIL
     Indication: Essential hypertension
     Dosage: AT NIGHT
     Route: 065
     Dates: start: 20250228, end: 20250331

REACTIONS (1)
  - Confusional state [Unknown]
